FAERS Safety Report 11870619 (Version 1)
Quarter: 2015Q4

REPORT INFORMATION
  Report Type: Spontaneous
  Country: US (occurrence: None)
  Receive Date: 20151224
  Receipt Date: 20151224
  Transmission Date: 20160305
  Serious: No
  Sender: FDA-Public Use
  Company Number: None

PATIENT
  Age: 77 Year
  Sex: Female

DRUGS (23)
  1. ESCITALOPRAM [Concomitant]
     Active Substance: ESCITALOPRAM OXALATE
  2. FLUTICASONE [Concomitant]
     Active Substance: FLUTICASONE\FLUTICASONE PROPIONATE
  3. LORATADINE. [Concomitant]
     Active Substance: LORATADINE
  4. MULTIVITAMIN [Concomitant]
     Active Substance: VITAMINS
  5. NYSTATIN ORAL LIQUID [Concomitant]
     Active Substance: NYSTATIN
  6. PROCHLORPERAZINE. [Concomitant]
     Active Substance: PROCHLORPERAZINE
  7. ALPRAZOLAM. [Concomitant]
     Active Substance: ALPRAZOLAM
  8. SALMETEROL [Concomitant]
     Active Substance: SALMETEROL
  9. FUROSEMIDE. [Concomitant]
     Active Substance: FUROSEMIDE
  10. MONTELUKAST [Concomitant]
     Active Substance: MONTELUKAST SODIUM
  11. NYSTATIN TOPICAL [Concomitant]
  12. ONDANSETRON [Concomitant]
     Active Substance: ONDANSETRON
  13. POTASSIUM CHLORIDE. [Concomitant]
     Active Substance: POTASSIUM CHLORIDE
  14. DOCUSATE [Concomitant]
     Active Substance: DOCUSATE
  15. HYDROCORTISONE. [Concomitant]
     Active Substance: HYDROCORTISONE
  16. LANSOPRAZOLE. [Concomitant]
     Active Substance: LANSOPRAZOLE
  17. SENNA [Concomitant]
     Active Substance: SENNA LEAF\SENNOSIDES\SENNOSIDES A AND B
  18. MORPHINE [Suspect]
     Active Substance: MORPHINE
     Indication: PAIN
     Dosage: 2 MG, PRN
     Route: 042
     Dates: start: 20150818, end: 20150819
  19. MEROPENEM. [Concomitant]
     Active Substance: MEROPENEM
  20. MORPHINE [Concomitant]
     Active Substance: MORPHINE
  21. POLYETHYLENE GLUCOL [Concomitant]
     Active Substance: POLYETHYLENE GLYCOLS
  22. MIRTAZAPINE. [Concomitant]
     Active Substance: MIRTAZAPINE
  23. LEVOFLOXACIN. [Concomitant]
     Active Substance: LEVOFLOXACIN

REACTIONS (5)
  - Somnolence [None]
  - Lethargy [None]
  - Disorientation [None]
  - Renal impairment [None]
  - Cachexia [None]

NARRATIVE: CASE EVENT DATE: 20150819
